FAERS Safety Report 8281405-8 (Version None)
Quarter: 2012Q2

REPORT INFORMATION
  Report Type: 
  Country: None (occurrence: None)
  Receive Date: 20120413
  Receipt Date: 20120405
  Transmission Date: 20120825
  Serious: Yes (Hospitalization)
  Sender: FDA-Public Use
  Company Number: DE-PFIZER INC-2012086331

PATIENT
  Sex: Male

DRUGS (2)
  1. SOMATROPIN [Suspect]
     Dosage: 0.1 UNK, 7 INJECTIONS PER WEEK
     Dates: start: 20041215, end: 20050126
  2. SOMATROPIN [Suspect]
     Dosage: 0.3 UNK, 7 INJECTIONS PER WEEK
     Dates: start: 20050127

REACTIONS (1)
  - FRACTURE [None]
